FAERS Safety Report 10925952 (Version 2)
Quarter: 2015Q2

REPORT INFORMATION
  Report Type: Report from Study
  Country: IT (occurrence: US)
  Receive Date: 20150318
  Receipt Date: 20150601
  Transmission Date: 20150821
  Serious: Yes (Hospitalization)
  Sender: FDA-Public Use
  Company Number: IT-JNJFOC-20150312053

PATIENT
  Age: 76 Year
  Sex: Female

DRUGS (1)
  1. RIVAROXABAN [Suspect]
     Active Substance: RIVAROXABAN
     Indication: PRODUCT USED FOR UNKNOWN INDICATION
     Route: 048
     Dates: start: 20121105, end: 20121106

REACTIONS (10)
  - Incision site haemorrhage [Unknown]
  - Post procedural complication [Unknown]
  - Urine output decreased [Unknown]
  - Ascites [Unknown]
  - Cardio-respiratory arrest [Unknown]
  - General physical health deterioration [Unknown]
  - Drug-induced liver injury [Unknown]
  - Mouth haemorrhage [Unknown]
  - Hepatic encephalopathy [Unknown]
  - Thrombocytopenia [Unknown]

NARRATIVE: CASE EVENT DATE: 20121107
